FAERS Safety Report 6893558-4 (Version None)
Quarter: 2010Q3

REPORT INFORMATION
  Report Type: 
  Country: None (occurrence: None)
  Receive Date: 20100731
  Receipt Date: 20091014
  Transmission Date: 20110219
  Serious: No
  Sender: FDA-Public Use
  Company Number: US-PFIZER INC-2009252932

PATIENT
  Sex: Female
  Weight: 68.027 kg

DRUGS (3)
  1. LIPITOR [Suspect]
     Indication: CARDIOVASCULAR EVENT PROPHYLAXIS
     Dosage: 10 MG, 1X/DAY
     Dates: start: 19910101
  2. ASPIRIN [Concomitant]
     Dosage: UNK
  3. KONSYL [Concomitant]
     Dosage: UNK

REACTIONS (3)
  - FATIGUE [None]
  - MUSCLE SPASMS [None]
  - MYALGIA [None]
